FAERS Safety Report 6212018-7 (Version None)
Quarter: 2009Q2

REPORT INFORMATION
  Report Type: 
  Country: None (occurrence: None)
  Receive Date: 20090602
  Receipt Date: 20090521
  Transmission Date: 20091009
  Serious: Yes (Hospitalization)
  Sender: FDA-Public Use
  Company Number: US-PFIZER INC-2009217511

PATIENT
  Sex: Male
  Weight: 83 kg

DRUGS (5)
  1. ZYVOX [Suspect]
     Indication: PNEUMONIA
     Dates: end: 20090517
  2. SPIRIVA [Concomitant]
  3. ATIVAN [Concomitant]
  4. PEPCID [Concomitant]
  5. TYLENOL (CAPLET) [Concomitant]

REACTIONS (3)
  - ATRIAL FIBRILLATION [None]
  - PNEUMONIA [None]
  - THROMBOCYTOPENIA [None]
